FAERS Safety Report 7155831-4 (Version None)
Quarter: 2010Q4

REPORT INFORMATION
  Report Type: 
  Country: None (occurrence: None)
  Receive Date: 20101123
  Receipt Date: 20100909
  Transmission Date: 20110411
  Serious: No
  Sender: FDA-Public Use
  Company Number: 010085

PATIENT
  Sex: Female

DRUGS (6)
  1. CIMZIA [Suspect]
     Indication: CROHN'S DISEASE
     Dosage: (SUBCUTANEOUS), (SUBCUTANEOUS), (400 MG 1X/2 WEEKS SUBCUTANEOUS), (400 MG 2X/MONTH SUBCUTANEOUS)
     Route: 058
     Dates: start: 20090414
  2. CIMZIA [Suspect]
     Indication: CROHN'S DISEASE
     Dosage: (SUBCUTANEOUS), (SUBCUTANEOUS), (400 MG 1X/2 WEEKS SUBCUTANEOUS), (400 MG 2X/MONTH SUBCUTANEOUS)
     Route: 058
     Dates: start: 20100716
  3. CIMZIA [Suspect]
     Indication: CROHN'S DISEASE
     Dosage: (SUBCUTANEOUS), (SUBCUTANEOUS), (400 MG 1X/2 WEEKS SUBCUTANEOUS), (400 MG 2X/MONTH SUBCUTANEOUS)
     Route: 058
     Dates: start: 20100812
  4. CIMZIA [Suspect]
  5. CIMZIA [Suspect]
  6. LORTAB [Concomitant]

REACTIONS (6)
  - ABDOMINAL PAIN [None]
  - FATIGUE [None]
  - HEADACHE [None]
  - INTESTINAL OBSTRUCTION [None]
  - NAUSEA [None]
  - VOMITING [None]
